FAERS Safety Report 5773651-X (Version None)
Quarter: 2008Q2

REPORT INFORMATION
  Report Type: 
  Country: None (occurrence: None)
  Receive Date: 20080616
  Receipt Date: 20080508
  Transmission Date: 20081010
  Serious: No
  Sender: FDA-Public Use
  Company Number: US-BAYER-200822835NA

PATIENT
  Age: 28 Year
  Sex: Female
  Weight: 74 kg

DRUGS (1)
  1. MIRENA [Suspect]
     Indication: CONTRACEPTION
     Route: 015
     Dates: start: 20070828, end: 20071109

REACTIONS (5)
  - ABDOMINAL PAIN [None]
  - GENITAL HAEMORRHAGE [None]
  - HEADACHE [None]
  - MALAISE [None]
  - PELVIC PAIN [None]
